FAERS Safety Report 7052877-1 (Version None)
Quarter: 2010Q4

REPORT INFORMATION
  Report Type: 
  Country: None (occurrence: None)
  Receive Date: 20101020
  Receipt Date: 20101011
  Transmission Date: 20110411
  Serious: Yes (Hospitalization, Disabling)
  Sender: FDA-Public Use
  Company Number: DE-BIOGENIDEC-2010BI034250

PATIENT
  Age: 53 Year
  Sex: Female
  Weight: 80 kg

DRUGS (8)
  1. TYSABRI [Suspect]
     Indication: MULTIPLE SCLEROSIS
     Route: 042
     Dates: start: 20061027, end: 20100501
  2. ASPIRIN [Concomitant]
  3. ANTIHYPERTENSIVES [Concomitant]
  4. STATINS [Concomitant]
  5. LEVOTHYROXINE SODIUM [Concomitant]
  6. DIGOXIN [Concomitant]
  7. REMIFEMIN [Concomitant]
  8. TILIDIN [Concomitant]

REACTIONS (1)
  - CEREBROVASCULAR ACCIDENT [None]
